FAERS Safety Report 8186643-0 (Version None)
Quarter: 2012Q1

REPORT INFORMATION
  Report Type: 
  Country: None (occurrence: None)
  Receive Date: 20120305
  Receipt Date: 20120305
  Transmission Date: 20120608
  Serious: Yes (Other)
  Sender: FDA-Public Use
  Company Number: None

PATIENT
  Age: 68 Year
  Sex: Female
  Weight: 63 kg

DRUGS (9)
  1. NASONEX [Concomitant]
  2. PATANOL [Concomitant]
  3. LEVOXYL [Concomitant]
  4. ASTELIN [Concomitant]
  5. VERAPAMIL [Concomitant]
  6. C+C DEEP ACTION CREAM CLEANSER 6.5OZ [Suspect]
     Indication: THERAPEUTIC SKIN CARE TOPICAL
     Dosage: DIME SIZE, 1X DAY, TOPICAL
     Route: 061
     Dates: start: 20110622, end: 20110622
  7. ALLEGRA [Concomitant]
  8. MAX AIR (PIRBUTEROL) INHALER [Concomitant]
  9. SINGULAIR [Concomitant]

REACTIONS (2)
  - BLOOD PRESSURE INCREASED [None]
  - DRUG HYPERSENSITIVITY [None]
